FAERS Safety Report 14656477 (Version 1)
Quarter: 2018Q1

REPORT INFORMATION
  Report Type: Spontaneous
  Country: SE (occurrence: SE)
  Receive Date: 20180319
  Receipt Date: 20180319
  Transmission Date: 20180509
  Serious: Yes (Other)
  Sender: FDA-Public Use
  Company Number: SE-PFIZER INC-2018108948

PATIENT
  Age: 53 Year
  Sex: Female

DRUGS (5)
  1. LEVAXIN [Concomitant]
     Active Substance: LEVOTHYROXINE SODIUM
  2. TRANDATE [Concomitant]
     Active Substance: LABETALOL HYDROCHLORIDE
  3. AMLODIPINE BESILATE [Suspect]
     Active Substance: AMLODIPINE BESYLATE
     Indication: HYPERTENSION
     Dosage: 5 MG, DAILY
     Route: 048
     Dates: start: 20171115, end: 20171127
  4. FURIX [Concomitant]
     Active Substance: FUROSEMIDE
  5. ESTRADERM [Concomitant]
     Active Substance: ESTRADIOL

REACTIONS (3)
  - Swelling face [Recovered/Resolved]
  - Pharyngeal oedema [Recovered/Resolved]
  - Tongue pruritus [Recovered/Resolved]

NARRATIVE: CASE EVENT DATE: 20171126
